FAERS Safety Report 9646446 (Version 1)
Quarter: 2013Q4

REPORT INFORMATION
  Report Type: Spontaneous
  Country: US (occurrence: US)
  Receive Date: 20131025
  Receipt Date: 20131025
  Transmission Date: 20140711
  Serious: No
  Sender: FDA-Public Use
  Company Number: US-009507513-1310USA004752

PATIENT
  Sex: Female

DRUGS (2)
  1. GANIRELIX ACETATE INJECTION [Suspect]
     Indication: ANOVULATORY CYCLE
     Dosage: 250 MICROGRAM, QD
     Route: 058
  2. GONADOTROPIN, CHORIONIC [Suspect]

REACTIONS (3)
  - Progesterone increased [Unknown]
  - Ovulation induction [Unknown]
  - Medication error [Unknown]
